FAERS Safety Report 5250554-0 (Version None)
Quarter: 2007Q1

REPORT INFORMATION
  Report Type: 
  Country: None (occurrence: None)
  Receive Date: 20070228
  Receipt Date: 20070220
  Transmission Date: 20070707
  Serious: Yes (Other)
  Sender: FDA-Public Use
  Company Number: US-ABBOTT-06P-163-0339309-00

PATIENT
  Sex: Female
  Weight: 84.898 kg

DRUGS (10)
  1. HUMIRA [Suspect]
     Indication: RHEUMATOID ARTHRITIS
     Route: 058
     Dates: start: 20060608, end: 20061001
  2. HUMIRA [Suspect]
     Route: 058
     Dates: start: 20061001
  3. PREDNISONE [Concomitant]
     Indication: RHEUMATOID ARTHRITIS
     Route: 048
     Dates: start: 20050101
  4. PREDNISONE [Concomitant]
     Route: 048
  5. FOLIC ACID [Concomitant]
     Indication: VITAMIN SUPPLEMENTATION
     Route: 048
     Dates: start: 20050101
  6. FUROSEMIDE [Concomitant]
     Indication: BLOOD PRESSURE INCREASED
     Route: 048
  7. ZESTRIL [Concomitant]
     Indication: BLOOD PRESSURE INCREASED
     Route: 048
  8. DILTIAZEM HYDROCHLORIDE [Concomitant]
     Indication: CARDIAC OUTPUT INCREASED
     Route: 048
     Dates: start: 20060726
  9. CLOPIDOGREL BISULFATE [Concomitant]
     Indication: ANTICOAGULANT THERAPY
     Route: 048
     Dates: start: 20060726
  10. METHOTREXATE [Concomitant]
     Indication: RHEUMATOID ARTHRITIS
     Route: 048
     Dates: start: 20050101

REACTIONS (5)
  - CORONARY ARTERY DISEASE [None]
  - DRUG INEFFECTIVE [None]
  - PROTHROMBIN LEVEL DECREASED [None]
  - PYREXIA [None]
  - RHEUMATOID ARTHRITIS [None]
